FAERS Safety Report 25352960 (Version 1)
Quarter: 2025Q2

REPORT INFORMATION
  Report Type: Spontaneous
  Country: SI (occurrence: SI)
  Receive Date: 20250523
  Receipt Date: 20250523
  Transmission Date: 20250716
  Serious: Yes (Hospitalization, Other)
  Sender: PFIZER
  Company Number: SI-ROCHE-10000284889

PATIENT
  Age: 33 Year
  Sex: Female

DRUGS (2)
  1. TRASTUZUMAB [Suspect]
     Active Substance: TRASTUZUMAB
     Indication: HER2 positive breast cancer
     Route: 065
  2. PERTUZUMAB [Concomitant]
     Active Substance: PERTUZUMAB

REACTIONS (2)
  - Cardiac failure [Recovering/Resolving]
  - Left ventricular dysfunction [Recovering/Resolving]
